FAERS Safety Report 24292110 (Version 1)
Quarter: 2024Q3

REPORT INFORMATION
  Report Type: Spontaneous
  Country: US (occurrence: None)
  Receive Date: 20240906
  Receipt Date: 20240906
  Transmission Date: 20241017
  Serious: No
  Sender: DOMPE FARMACEUTICI
  Company Number: US-FARMAPROD-202307-2174

PATIENT
  Sex: Female
  Weight: 64.86 kg

DRUGS (14)
  1. OXERVATE [Suspect]
     Active Substance: CENEGERMIN-BKBJ
     Indication: Hypoaesthesia eye
     Route: 047
     Dates: start: 20230516
  2. NAPROXEN [Concomitant]
     Active Substance: NAPROXEN
  3. VITAMINS [Concomitant]
     Active Substance: VITAMINS
  4. MAGNESIUM [Concomitant]
     Active Substance: MAGNESIUM
  5. INVELTYS [Concomitant]
     Active Substance: LOTEPREDNOL ETABONATE
  6. ZERVIATE [Concomitant]
     Active Substance: CETIRIZINE HYDROCHLORIDE
  7. CEQUA [Concomitant]
     Active Substance: CYCLOSPORINE
  8. PREDNISONE [Concomitant]
     Active Substance: PREDNISONE
  9. PREDNISONE [Concomitant]
     Active Substance: PREDNISONE
  10. ROSUVASTATIN CALCIUM [Concomitant]
     Active Substance: ROSUVASTATIN CALCIUM
  11. RESTASIS [Concomitant]
     Active Substance: CYCLOSPORINE
  12. AZELASTINE FLUTICASONE [Concomitant]
  13. ALBUTEROL SULFATE [Concomitant]
     Active Substance: ALBUTEROL SULFATE
     Dosage: 2.5 MG/3ML VIAL-NEB
  14. ALBUTEROL SULFATE [Concomitant]
     Active Substance: ALBUTEROL SULFATE
     Dosage: HYDROFLUOROALKANE AEREOSOL  WITH ADAPTER

REACTIONS (2)
  - Product administration error [Unknown]
  - Product dose omission issue [Unknown]
